FAERS Safety Report 7625849-3 (Version None)
Quarter: 2011Q3

REPORT INFORMATION
  Report Type: 
  Country: None (occurrence: None)
  Receive Date: 20110721
  Receipt Date: 20110707
  Transmission Date: 20111222
  Serious: Yes (Other)
  Sender: FDA-Public Use
  Company Number: US-BAYER-2011-060716

PATIENT
  Sex: Female

DRUGS (2)
  1. SARGRAMOSTIM [Suspect]
     Indication: METASTATIC MALIGNANT MELANOMA
  2. MDX-010 [Suspect]
     Indication: METASTATIC MALIGNANT MELANOMA

REACTIONS (6)
  - DYSPNOEA [None]
  - MUSCLE SPASMS [None]
  - CHEST DISCOMFORT [None]
  - FLUSHING [None]
  - HYPERHIDROSIS [None]
  - BACK PAIN [None]
